FAERS Safety Report 5265546-5 (Version None)
Quarter: 2007Q1

REPORT INFORMATION
  Report Type: 
  Country: None (occurrence: None)
  Receive Date: 20070314
  Receipt Date: 20070305
  Transmission Date: 20070707
  Serious: Yes (Other)
  Sender: FDA-Public Use
  Company Number: BR-PFIZER INC-2007017590

PATIENT
  Age: 44 Year
  Sex: Female

DRUGS (1)
  1. LIPITOR [Suspect]
     Indication: HYPERTRIGLYCERIDAEMIA
     Route: 048

REACTIONS (1)
  - INNER EAR DISORDER [None]
